FAERS Safety Report 13307827 (Version 1)
Quarter: 2017Q1

REPORT INFORMATION
  Report Type: Spontaneous
  Country: US (occurrence: US)
  Receive Date: 20170308
  Receipt Date: 20170308
  Transmission Date: 20170428
  Serious: Yes (Other)
  Sender: FDA-Public Use
  Company Number: US-BEH-2017078583

PATIENT
  Sex: Male
  Weight: 57.14 kg

DRUGS (35)
  1. LMX                                /00033401/ [Concomitant]
  2. PREDNISONE. [Concomitant]
     Active Substance: PREDNISONE
  3. NOVOLOG [Concomitant]
     Active Substance: INSULIN ASPART
  4. PROTONIX [Concomitant]
     Active Substance: PANTOPRAZOLE SODIUM
  5. ATOVAQUONE. [Concomitant]
     Active Substance: ATOVAQUONE
  6. ACETAMINOPHEN. [Concomitant]
     Active Substance: ACETAMINOPHEN
  7. PRIVIGEN [Suspect]
     Active Substance: HUMAN IMMUNOGLOBULIN G
     Indication: IMMUNODEFICIENCY COMMON VARIABLE
     Dosage: 25 G, QMT
     Route: 042
     Dates: start: 20150302
  8. SODIUM CHLORIDE. [Concomitant]
     Active Substance: SODIUM CHLORIDE
  9. PULMICORT NASAL AQ [Concomitant]
  10. DOXYCYCLINE HYCLATE. [Concomitant]
     Active Substance: DOXYCYCLINE HYCLATE
  11. VENTOLIN HFA [Concomitant]
     Active Substance: ALBUTEROL SULFATE
  12. OMEGA-3                            /01866101/ [Concomitant]
     Active Substance: OMEGA-3 FATTY ACIDS
  13. EPIPEN [Concomitant]
     Active Substance: EPINEPHRINE
  14. SIROLIMUS. [Concomitant]
     Active Substance: SIROLIMUS
  15. VALACYCLOVIR [Concomitant]
     Active Substance: VALACYCLOVIR HYDROCHLORIDE
  16. CLONAZEPAM. [Concomitant]
     Active Substance: CLONAZEPAM
  17. ELIQUIS [Concomitant]
     Active Substance: APIXABAN
  18. FLUCONAZOLE. [Concomitant]
     Active Substance: FLUCONAZOLE
  19. RESTASIS [Concomitant]
     Active Substance: CYCLOSPORINE
  20. CALCIUM+D3 [Concomitant]
  21. BIOTIN [Concomitant]
     Active Substance: BIOTIN
  22. PRIVIGEN [Suspect]
     Active Substance: HUMAN IMMUNOGLOBULIN G
     Dosage: UNK
     Route: 042
  23. HEPARIN [Concomitant]
     Active Substance: HEPARIN SODIUM
  24. INSULIN DETEMIR [Concomitant]
     Active Substance: INSULIN DETEMIR
  25. VITAMIN D2 [Concomitant]
     Active Substance: ERGOCALCIFEROL
  26. FLUTICASONE. [Concomitant]
     Active Substance: FLUTICASONE
  27. HYDROXYZINE [Concomitant]
     Active Substance: HYDROXYZINE HYDROCHLORIDE
  28. ANDROGEL [Concomitant]
     Active Substance: TESTOSTERONE
  29. MAGNESIUM OXIDE. [Concomitant]
     Active Substance: MAGNESIUM OXIDE
  30. OXYGEN. [Concomitant]
     Active Substance: OXYGEN
  31. VITAMINS WITH MINERALS [Concomitant]
     Active Substance: MINERALS\VITAMINS
  32. IRON [Concomitant]
     Active Substance: IRON
  33. PRIVIGEN [Suspect]
     Active Substance: HUMAN IMMUNOGLOBULIN G
     Dosage: UNK
     Route: 042
  34. SINGULAIR [Concomitant]
     Active Substance: MONTELUKAST SODIUM
  35. SOTALOL. [Concomitant]
     Active Substance: SOTALOL

REACTIONS (1)
  - Atrial fibrillation [Unknown]
